FAERS Safety Report 10065225 (Version 1)
Quarter: 2014Q2

REPORT INFORMATION
  Report Type: Spontaneous
  Country: US (occurrence: None)
  Receive Date: 20140404
  Receipt Date: 20140404
  Transmission Date: 20141212
  Serious: Yes (Hospitalization, Other)
  Sender: FDA-Public Use
  Company Number: 2014P1001239

PATIENT
  Age: 37 Year
  Sex: Male
  Weight: 88 kg

DRUGS (5)
  1. ACTIMMUNE [Suspect]
     Indication: COCCIDIOIDOMYCOSIS
     Dates: start: 2013
  2. POSICONAZOLE [Concomitant]
  3. CLONIDINE [Concomitant]
  4. METOPROLOL [Concomitant]
  5. CASPOFINGIN [Concomitant]

REACTIONS (3)
  - Infection [None]
  - Deep vein thrombosis [None]
  - Wound infection [None]
